FAERS Safety Report 7888644-6 (Version None)
Quarter: 2011Q4

REPORT INFORMATION
  Report Type: 
  Country: None (occurrence: None)
  Receive Date: 20111103
  Receipt Date: 20111101
  Transmission Date: 20120403
  Serious: Yes (Hospitalization, Other)
  Sender: FDA-Public Use
  Company Number: GB-ROCHE-1008786

PATIENT
  Age: 47 Year
  Sex: Female

DRUGS (5)
  1. LEFLUNOMIDE [Suspect]
     Indication: RHEUMATOID ARTHRITIS
     Route: 048
     Dates: start: 20070601, end: 20110701
  2. LEVOTHYROXINE SODIUM [Concomitant]
  3. VITAMIN B-12 [Concomitant]
  4. IRON [Concomitant]
  5. RITUXIMAB [Suspect]
     Indication: RHEUMATOID ARTHRITIS
     Route: 042
     Dates: start: 20101001

REACTIONS (2)
  - CELLULITIS [None]
  - NEUTROPENIA [None]
